FAERS Safety Report 6305964-7 (Version None)
Quarter: 2009Q3

REPORT INFORMATION
  Report Type: 
  Country: None (occurrence: None)
  Receive Date: 20090810
  Receipt Date: 20090810
  Transmission Date: 20100115
  Serious: No
  Sender: FDA-Public Use
  Company Number: None

PATIENT
  Age: 54 Year
  Sex: Male
  Weight: 74.8435 kg

DRUGS (1)
  1. ALBUTEROL [Suspect]

REACTIONS (1)
  - DRUG INEFFECTIVE [None]
